FAERS Safety Report 19893264 (Version 3)
Quarter: 2022Q1

REPORT INFORMATION
  Report Type: Spontaneous
  Country: US (occurrence: US)
  Receive Date: 20210928
  Receipt Date: 20220210
  Transmission Date: 20220423
  Serious: No
  Sender: FDA-Public Use
  Company Number: US-SA-SAC20210923001191

PATIENT
  Age: 61 Year
  Sex: Female

DRUGS (3)
  1. KEVZARA [Suspect]
     Active Substance: SARILUMAB
     Indication: Pain
     Dosage: 150 MG, Q3W
     Route: 058
  2. CURCUMIN [Concomitant]
     Active Substance: CURCUMIN
     Dosage: UNK
  3. DAILY-VITE [Concomitant]
     Dosage: UNK

REACTIONS (5)
  - Pain [Unknown]
  - Arthropathy [Unknown]
  - Product use issue [Unknown]
  - Product use in unapproved indication [Unknown]
  - Product dose omission issue [Unknown]
